FAERS Safety Report 8310509-6 (Version None)
Quarter: 2012Q2

REPORT INFORMATION
  Report Type: 
  Country: None (occurrence: None)
  Receive Date: 20120425
  Receipt Date: 20120416
  Transmission Date: 20120825
  Serious: Yes (Other)
  Sender: FDA-Public Use
  Company Number: US-JNJFOC-20111209646

PATIENT
  Sex: Female
  Weight: 37.65 kg

DRUGS (5)
  1. BENGAY VANISHING SCENT [Suspect]
     Indication: PAIN
     Dosage: A SMALL AMOUNT
     Route: 061
     Dates: start: 20111208, end: 20111208
  2. INDERAL [Concomitant]
     Indication: MIGRAINE PROPHYLAXIS
     Dosage: YEARS AGO
     Route: 065
  3. VITAMIN B COMPLEX CAP [Concomitant]
     Indication: VITAMIN SUPPLEMENTATION
     Dosage: YEARS AGO
     Route: 065
  4. RELPAX [Concomitant]
     Indication: MIGRAINE
     Dosage: ONE YEAR AGO
     Route: 065
     Dates: start: 20100101
  5. ASCORBIC ACID [Concomitant]
     Indication: VITAMIN SUPPLEMENTATION
     Dosage: YEARS AGO
     Route: 065

REACTIONS (1)
  - BURNS SECOND DEGREE [None]
